FAERS Safety Report 4309341-X (Version None)
Quarter: 2004Q1

REPORT INFORMATION
  Report Type: 
  Country: None (occurrence: None)
  Receive Date: 20040302
  Receipt Date: 20040114
  Transmission Date: 20041129
  Serious: Yes (Death, Disabling, Other)
  Sender: FDA-Public Use
  Company Number: WAES 0401USA01216

PATIENT
  Age: 87 Year
  Sex: Female

DRUGS (2)
  1. CLARITHROMYCIN [Concomitant]
     Route: 048
     Dates: start: 20031129, end: 20031216
  2. PEPCID [Suspect]
     Indication: GASTRIC ULCER
     Route: 048
     Dates: start: 20031210, end: 20031215

REACTIONS (5)
  - AGRANULOCYTOSIS [None]
  - DEATH [None]
  - GENERAL PHYSICAL HEALTH DETERIORATION [None]
  - PNEUMONIA [None]
  - PNEUMOTHORAX [None]
